FAERS Safety Report 8383522-0 (Version None)
Quarter: 2012Q1

REPORT INFORMATION
  Report Type: 
  Country: None (occurrence: None)
  Receive Date: 20120323
  Receipt Date: 20110318
  Transmission Date: 20120608
  Serious: Yes (Other)
  Sender: FDA-Public Use
  Company Number: 163-21880-11032416

PATIENT
  Age: 71 Year
  Sex: Male

DRUGS (1)
  1. REVLIMID [Suspect]
     Indication: MULTIPLE MYELOMA
     Dosage: 10 MG, QD X 21, PO
     Route: 048
     Dates: start: 20100625, end: 20110210

REACTIONS (1)
  - THROMBOCYTOPENIA [None]
